FAERS Safety Report 26175538 (Version 1)
Quarter: 2025Q4

REPORT INFORMATION
  Report Type: Spontaneous
  Country: GB (occurrence: GB)
  Receive Date: 20251218
  Receipt Date: 20251218
  Transmission Date: 20260118
  Serious: Yes (Congenital Anomaly, Other)
  Sender: AMGEN
  Company Number: GB-MHRA-37898595

PATIENT

DRUGS (1)
  1. ADALIMUMAB [Suspect]
     Active Substance: ADALIMUMAB
     Indication: Exposure during pregnancy
     Dosage: UNK
     Route: 064

REACTIONS (2)
  - Neural tube defect [Unknown]
  - Foetal exposure during pregnancy [Unknown]
